FAERS Safety Report 13567097 (Version 1)
Quarter: 2017Q2

REPORT INFORMATION
  Report Type: Spontaneous
  Country: US (occurrence: US)
  Receive Date: 20170521
  Receipt Date: 20170521
  Transmission Date: 20170830
  Serious: Yes (Life-Threatening, Hospitalization, Disabling)
  Sender: FDA-Public Use
  Company Number: None

PATIENT
  Age: 66 Year
  Sex: Female
  Weight: 67.5 kg

DRUGS (3)
  1. BELSOMRA [Concomitant]
     Active Substance: SUVOREXANT
  2. CIPRO [Suspect]
     Active Substance: CIPROFLOXACIN HYDROCHLORIDE
     Indication: ANIMAL BITE
     Dates: start: 20141012, end: 20141013
  3. XANAX [Concomitant]
     Active Substance: ALPRAZOLAM

REACTIONS (22)
  - Seizure [None]
  - Gait disturbance [None]
  - Depression [None]
  - Chronic gastritis [None]
  - Hypersensitivity [None]
  - Dysarthria [None]
  - Abdominal pain [None]
  - Swollen tongue [None]
  - Rash [None]
  - Fall [None]
  - Aggression [None]
  - Gastrooesophageal reflux disease [None]
  - Quadriplegia [None]
  - Glossodynia [None]
  - Dementia [None]
  - Muscular weakness [None]
  - Panic attack [None]
  - Cough [None]
  - Cognitive disorder [None]
  - Insomnia [None]
  - Anxiety [None]
  - Fatigue [None]

NARRATIVE: CASE EVENT DATE: 20141012
